FAERS Safety Report 8966951 (Version 2)
Quarter: 2013Q1

REPORT INFORMATION
  Report Type: Spontaneous
  Country: DE (occurrence: DE)
  Receive Date: 20121217
  Receipt Date: 20130111
  Transmission Date: 20140127
  Serious: Yes (Other)
  Sender: FDA-Public Use
  Company Number: DE-ALLERGAN-1217466US

PATIENT
  Age: 30 Year
  Sex: Female

DRUGS (1)
  1. VISTABEL [Suspect]
     Indication: SKIN WRINKLING
     Dosage: 30 UNITS, SINGLE
     Route: 030

REACTIONS (5)
  - Circulatory collapse [Recovered/Resolved]
  - Cardiovascular disorder [Recovered/Resolved]
  - Dyspnoea [Recovered/Resolved]
  - Incorrect dose administered [Unknown]
  - Hypersensitivity [Recovered/Resolved]
